FAERS Safety Report 17917705 (Version 1)
Quarter: 2020Q2

REPORT INFORMATION
  Report Type: Report from Study
  Country: AR (occurrence: AR)
  Receive Date: 20200619
  Receipt Date: 20200619
  Transmission Date: 20200714
  Serious: Yes (Other)
  Sender: FDA-Public Use
  Company Number: AR-BIOGEN-2020BI00886646

PATIENT
  Age: 14 Year
  Sex: Female

DRUGS (8)
  1. SALBUTAMOL [Concomitant]
     Active Substance: ALBUTEROL
     Indication: PRODUCT USED FOR UNKNOWN INDICATION
     Route: 065
  2. SPINRAZA [Suspect]
     Active Substance: NUSINERSEN
     Indication: SPINAL MUSCULAR ATROPHY
     Dosage: LOADING DOSE
     Route: 037
     Dates: start: 20181017, end: 20181114
  3. SPINRAZA [Suspect]
     Active Substance: NUSINERSEN
     Dosage: LOADING DOSE
     Route: 037
     Dates: start: 20181114, end: 20181207
  4. SPINRAZA [Suspect]
     Active Substance: NUSINERSEN
     Dosage: MAINTENAINCE DOSE
     Route: 037
     Dates: start: 20191226, end: 20200522
  5. SPINRAZA [Suspect]
     Active Substance: NUSINERSEN
     Dosage: MAINTENAINCE DOSE
     Route: 037
     Dates: start: 20200522
  6. CARNITINE [Concomitant]
     Active Substance: CARNITINE
     Indication: PRODUCT USED FOR UNKNOWN INDICATION
     Route: 065
  7. SPINRAZA [Suspect]
     Active Substance: NUSINERSEN
     Dosage: MAINTENAINCE DOSE
     Route: 037
     Dates: start: 20181207, end: 20190430
  8. SPINRAZA [Suspect]
     Active Substance: NUSINERSEN
     Dosage: MAINTENAINCE DOSE
     Route: 037
     Dates: start: 20190430, end: 20191226

REACTIONS (5)
  - Aphasia [Recovered/Resolved]
  - Blood pressure increased [Recovered/Resolved]
  - Confusional state [Recovered/Resolved]
  - Headache [Recovered/Resolved]
  - Feeling cold [Recovered/Resolved]

NARRATIVE: CASE EVENT DATE: 20200522
